FAERS Safety Report 13003386 (Version 2)
Quarter: 2017Q1

REPORT INFORMATION
  Report Type: Spontaneous
  Country: US (occurrence: US)
  Receive Date: 20161206
  Receipt Date: 20170103
  Transmission Date: 20170428
  Serious: No
  Sender: FDA-Public Use
  Company Number: US-BAYER-2016-230437

PATIENT
  Age: 39 Year
  Sex: Female

DRUGS (1)
  1. CLIMARA [Suspect]
     Active Substance: ESTRADIOL
     Dosage: 0.1 MG, OW
     Route: 062
     Dates: start: 2016

REACTIONS (3)
  - Hot flush [Recovered/Resolved]
  - Product shape issue [None]
  - Product adhesion issue [None]

NARRATIVE: CASE EVENT DATE: 2016
